FAERS Safety Report 13039669 (Version 1)
Quarter: 2016Q4

REPORT INFORMATION
  Report Type: Spontaneous
  Country: US (occurrence: US)
  Receive Date: 20161218
  Receipt Date: 20161218
  Transmission Date: 20170207
  Serious: No
  Sender: FDA-Public Use
  Company Number: None

PATIENT
  Age: 64 Year
  Sex: Female
  Weight: 85.5 kg

DRUGS (21)
  1. PREDNISONE. [Concomitant]
     Active Substance: PREDNISONE
  2. DUO-NEB [Concomitant]
  3. SYNTHROID [Concomitant]
     Active Substance: LEVOTHYROXINE SODIUM
  4. CALTRATE [Concomitant]
     Active Substance: CALCIUM CARBONATE
  5. PROVIGIL [Concomitant]
     Active Substance: MODAFINIL
  6. LASIX [Concomitant]
     Active Substance: FUROSEMIDE
  7. PROZAC [Concomitant]
     Active Substance: FLUOXETINE HYDROCHLORIDE
  8. DULERA [Concomitant]
     Active Substance: FORMOTEROL FUMARATE DIHYDRATE\MOMETASONE FUROATE
  9. METOPROLOL ER 100 MG TAB DR. REDDY^S [Suspect]
     Active Substance: METOPROLOL SUCCINATE
     Indication: HYPERTENSION
     Dosage: ?          QUANTITY:1 TABLET(S);?
     Route: 048
  10. VITAFUSION B COMPLEX [Concomitant]
  11. HOME OXYGEN [Concomitant]
  12. NEXIUM [Concomitant]
     Active Substance: ESOMEPRAZOLE MAGNESIUM
  13. VENTOLIN [Concomitant]
     Active Substance: ALBUTEROL SULFATE
  14. LOSARTIN [Concomitant]
     Active Substance: LOSARTAN
  15. NUCALA [Concomitant]
     Active Substance: MEPOLIZUMAB
  16. SINGULAIR [Concomitant]
     Active Substance: MONTELUKAST SODIUM
  17. TOPROL XL [Concomitant]
     Active Substance: METOPROLOL SUCCINATE
  18. VITAFUSION D3 [Concomitant]
  19. ONE A DAY ADULT MULTIVITAMIN/MULTIMINERAL [Concomitant]
  20. METOPROLOL ER 100 MG TAB DR. REDDY^S [Suspect]
     Active Substance: METOPROLOL SUCCINATE
     Indication: CARDIAC FAILURE CONGESTIVE
     Dosage: ?          QUANTITY:1 TABLET(S);?
     Route: 048
  21. MYRBETRIC [Concomitant]

REACTIONS (4)
  - Product substitution issue [None]
  - Product quality issue [None]
  - Blood pressure increased [None]
  - Drug ineffective [None]

NARRATIVE: CASE EVENT DATE: 20161201
